FAERS Safety Report 8785407 (Version 1)
Quarter: 2012Q4

REPORT INFORMATION
  Report Type: 
  Country: FR (occurrence: FR)
  Receive Date: 20120914
  Receipt Date: 20120914
  Transmission Date: 20130627
  Serious: Yes (Death)
  Sender: FDA-Public Use
  Company Number: FR-009507513-2012SP031002

PATIENT

DRUGS (3)
  1. SYCREST [Suspect]
     Indication: MOOD SWINGS
     Dosage: 5 mg, UNK
     Dates: start: 20120327
  2. PROZAC [Concomitant]
     Indication: PRODUCT USED FOR UNKNOWN INDICATION
     Dosage: 20 mg, Unknown
     Dates: start: 20120215, end: 20120410
  3. NOCTAMIDE [Concomitant]
     Indication: PRODUCT USED FOR UNKNOWN INDICATION
     Dosage: 2 mg, Unknown
     Dates: start: 201101

REACTIONS (1)
  - Completed suicide [Fatal]
